FAERS Safety Report 8790865 (Version 1)
Quarter: 2012Q4

REPORT INFORMATION
  Report Type: Spontaneous
  Country: US (occurrence: None)
  Receive Date: 20120913
  Receipt Date: 20120913
  Transmission Date: 20130627
  Serious: Yes (Life-Threatening, Hospitalization, Disabling, Other)
  Sender: FDA-Public Use
  Company Number: None

PATIENT
  Age: 63 Year
  Sex: Male
  Weight: 92.99 kg

DRUGS (2)
  1. EFFIENT 10 MG ELI LILLY + CO [Suspect]
     Indication: CORONARY STENT PLACEMENT
     Route: 048
  2. ASPIRIN [Suspect]
     Indication: CORONARY STENT PLACEMENT
     Route: 048

REACTIONS (1)
  - Gastrointestinal haemorrhage [None]
